FAERS Safety Report 4856130-3 (Version None)
Quarter: 2005Q4

REPORT INFORMATION
  Report Type: 
  Country: None (occurrence: None)
  Receive Date: 20051216
  Receipt Date: 20051005
  Transmission Date: 20060501
  Serious: Yes (Disabling, Other)
  Sender: FDA-Public Use
  Company Number: US-MERCK-0510USA03468

PATIENT
  Age: 42 Year
  Sex: Male
  Weight: 141 kg

DRUGS (1)
  1. VIOXX [Suspect]
     Indication: ARTHRITIS
     Route: 048
     Dates: start: 20020801, end: 20030901

REACTIONS (9)
  - ARTHRITIS [None]
  - CHEST PAIN [None]
  - CHRONIC SINUSITIS [None]
  - CONVULSION [None]
  - COUGH [None]
  - DYSPHONIA [None]
  - NASAL SEPTUM DEVIATION [None]
  - REVERSIBLE AIRWAYS OBSTRUCTION [None]
  - VOCAL CORD PARALYSIS [None]
